FAERS Safety Report 10726190 (Version 1)
Quarter: 2015Q1

REPORT INFORMATION
  Report Type: Spontaneous
  Country: CA (occurrence: None)
  Receive Date: 20150116
  Receipt Date: 20150116
  Transmission Date: 20150721
  Serious: Yes (Other)
  Sender: FDA-Public Use
  Company Number: 2014RN000046

PATIENT
  Age: 19 Year
  Sex: Female
  Weight: 56.6 kg

DRUGS (3)
  1. PRENATAL VITAMINS /02014401/ (ASCORBIC ACID, CALCIUM PANTOTHENATE CYANOCOBALAMIN, ERGOCALCIFEROL, NICOTINAMIDE, PYRIDOXINE HYDROCHLORIDE, RETINOL PALMITATE, RIBOFLAVIN, THIAMINE MONONITRATE) [Concomitant]
  2. VALACICLOVIR HYDROCHLORIDE [Suspect]
     Active Substance: VALACYCLOVIR HYDROCHLORIDE
     Indication: GENITAL HERPES
     Route: 048
     Dates: start: 20140617, end: 20140628
  3. ACYCLOVIR. [Suspect]
     Active Substance: ACYCLOVIR
     Indication: PRODUCT USED FOR UNKNOWN INDICATION

REACTIONS (2)
  - Endometritis decidual [None]
  - Exposure during pregnancy [None]

NARRATIVE: CASE EVENT DATE: 20140911
